FAERS Safety Report 21228002 (Version 1)
Quarter: 2022Q3

REPORT INFORMATION
  Report Type: Spontaneous
  Country: CN (occurrence: CN)
  Receive Date: 20220818
  Receipt Date: 20220818
  Transmission Date: 20221026
  Serious: Yes (Other)
  Sender: FDA-Public Use
  Company Number: CN-PFIZER INC-PV202200044383

PATIENT
  Age: 41 Year
  Sex: Male
  Weight: 68 kg

DRUGS (5)
  1. METHYLPREDNISOLONE [Suspect]
     Active Substance: METHYLPREDNISOLONE
     Indication: Immunosuppression
     Dosage: 6 MG, 1X/DAY
     Route: 048
     Dates: start: 20220719, end: 20220726
  2. SODIUM CHLORIDE [Concomitant]
     Active Substance: SODIUM CHLORIDE
     Indication: Vehicle solution use
     Dosage: 100 ML, 1X/DAY
     Route: 041
     Dates: start: 20220714, end: 20220726
  3. ADENOSINE CYCLPHOSPHATE [Concomitant]
     Indication: Therapeutic procedure
     Dosage: 40 MG, 1X/DAY
     Route: 041
     Dates: start: 20220714, end: 20220726
  4. GLUTATHIONE [Concomitant]
     Active Substance: GLUTATHIONE
     Indication: Therapeutic procedure
     Dosage: 1.8 G, 1X/DAY
     Route: 041
     Dates: start: 20220714, end: 20220726
  5. DEXTROSE [Concomitant]
     Active Substance: DEXTROSE
     Indication: Vehicle solution use
     Dosage: 250 ML, 1X/DAY
     Route: 041
     Dates: start: 20220714, end: 20220726

REACTIONS (2)
  - Swelling of eyelid [Recovering/Resolving]
  - Off label use [Unknown]

NARRATIVE: CASE EVENT DATE: 20220719
